FAERS Safety Report 5095512-4 (Version None)
Quarter: 2006Q3

REPORT INFORMATION
  Report Type: 
  Country: None (occurrence: None)
  Receive Date: 20060830
  Receipt Date: 20060830
  Transmission Date: 20061208
  Serious: Yes (Hospitalization)
  Sender: FDA-Public Use
  Company Number: None

PATIENT
  Age: 69 Year
  Sex: Male
  Weight: 90.7 kg

DRUGS (5)
  1. MYFORTIC [Suspect]
     Indication: PROPHYLAXIS AGAINST TRANSPLANT REJECTION
     Dosage: 720 MG PO BID
     Route: 048
     Dates: start: 20060815
  2. METHYLPREDNISOLONE [Concomitant]
  3. PREDNISONE TAB [Concomitant]
  4. TACROLIMUS [Concomitant]
  5. LITHIUM CARBONATE [Concomitant]

REACTIONS (5)
  - COMPLICATIONS OF TRANSPLANTED KIDNEY [None]
  - CONFUSIONAL STATE [None]
  - MENTAL STATUS CHANGES [None]
  - THINKING ABNORMAL [None]
  - WOUND DRAINAGE [None]
